FAERS Safety Report 23586076 (Version 2)
Quarter: 2024Q2

REPORT INFORMATION
  Report Type: Report from Study
  Country: US (occurrence: US)
  Receive Date: 20240301
  Receipt Date: 20240511
  Transmission Date: 20240716
  Serious: No
  Sender: FDA-Public Use
  Company Number: US-ALXN-A202102342

PATIENT
  Sex: Male

DRUGS (1)
  1. STRENSIQ [Suspect]
     Active Substance: ASFOTASE ALFA
     Indication: Hypophosphatasia
     Dosage: UNK
     Route: 065

REACTIONS (11)
  - Fatigue [Recovering/Resolving]
  - Hypersomnia [Unknown]
  - Depression [Unknown]
  - Pain [Recovering/Resolving]
  - Drug ineffective [Unknown]
  - Feeling abnormal [Recovering/Resolving]
  - Malaise [Recovering/Resolving]
  - Skin injury [Unknown]
  - Injection site pain [Unknown]
  - Injection site discolouration [Unknown]
  - Injection site erythema [Unknown]
